FAERS Safety Report 7489642-7 (Version None)
Quarter: 2011Q2

REPORT INFORMATION
  Report Type: 
  Country: None (occurrence: None)
  Receive Date: 20110519
  Receipt Date: 20110511
  Transmission Date: 20111010
  Serious: No
  Sender: FDA-Public Use
  Company Number: US-BIOGENIDEC-2011BI004354

PATIENT
  Age: 42 Year
  Sex: Female

DRUGS (1)
  1. TYSABRI [Suspect]
     Indication: MULTIPLE SCLEROSIS
     Route: 042
     Dates: start: 20100705, end: 20110120

REACTIONS (8)
  - CHROMATURIA [None]
  - VAGINAL INFECTION [None]
  - CYSTITIS [None]
  - FATIGUE [None]
  - ORAL HERPES [None]
  - MOOD SWINGS [None]
  - NASOPHARYNGITIS [None]
  - URINE ODOUR ABNORMAL [None]
